FAERS Safety Report 9265195 (Version 1)
Quarter: 2013Q2

REPORT INFORMATION
  Report Type: Spontaneous
  Country: CO (occurrence: CO)
  Receive Date: 20130501
  Receipt Date: 20130501
  Transmission Date: 20140414
  Serious: Yes (Other)
  Sender: FDA-Public Use
  Company Number: CO-PFIZER INC-2013131125

PATIENT
  Age: 2 Year
  Sex: Male
  Weight: 11 kg

DRUGS (1)
  1. GENOTROPIN [Suspect]
     Indication: HYPOPITUITARISM
     Dosage: 0.3 MG, 1X/DAY
     Route: 058
     Dates: start: 20130122, end: 20130419

REACTIONS (3)
  - Cryptorchism [Unknown]
  - Tonsillitis [Not Recovered/Not Resolved]
  - Pyrexia [Not Recovered/Not Resolved]
